FAERS Safety Report 8976731 (Version 1)
Quarter: 2012Q4

REPORT INFORMATION
  Report Type: 
  Country: US (occurrence: US)
  Receive Date: 20121219
  Receipt Date: 20121219
  Transmission Date: 20130627
  Serious: No
  Sender: FDA-Public Use
  Company Number: US-AMGEN-USASP2012061049

PATIENT
  Age: 83 Year
  Sex: Female
  Weight: 43.08 kg

DRUGS (1)
  1. PROLIA [Suspect]
     Indication: OSTEOPOROSIS POSTMENOPAUSAL
     Dosage: UNK

REACTIONS (3)
  - Mastication disorder [Recovered/Resolved]
  - Weight decreased [Recovered/Resolved]
  - Jaw disorder [Recovered/Resolved]
